FAERS Safety Report 8583421-5 (Version None)
Quarter: 2012Q3

REPORT INFORMATION
  Report Type: 
  Country: None (occurrence: None)
  Receive Date: 20120809
  Receipt Date: 20120727
  Transmission Date: 20120928
  Serious: Yes (Other)
  Sender: FDA-Public Use
  Company Number: CHPA2012US016936

PATIENT
  Age: 85 Year
  Sex: Female

DRUGS (2)
  1. EXCEDRIN EXTRA STRENGTH TABLETS [Suspect]
     Dosage: UNK DF, PRN
     Route: 048
  2. EXCEDRIN EXTRA STRENGTH TABLETS [Suspect]
     Indication: INFLUENZA
     Dosage: 1 OR 2 DF, QD
     Route: 048

REACTIONS (4)
  - OFF LABEL USE [None]
  - UNDERDOSE [None]
  - INCORRECT DRUG ADMINISTRATION DURATION [None]
  - SJOGREN'S SYNDROME [None]
